FAERS Safety Report 20739166 (Version 2)
Quarter: 2022Q2

REPORT INFORMATION
  Report Type: Spontaneous
  Country: NO (occurrence: NO)
  Receive Date: 20220422
  Receipt Date: 20220429
  Transmission Date: 20220721
  Serious: Yes (Hospitalization, Other)
  Sender: FDA-Public Use
  Company Number: NO-ORIFARM GENETICS A/S-2022NO000154

PATIENT
  Sex: Female

DRUGS (3)
  1. PREDNISOLONE [Suspect]
     Active Substance: PREDNISOLONE
     Indication: Inflammation
     Route: 065
     Dates: start: 2001
  2. PREDNISOLONE [Suspect]
     Active Substance: PREDNISOLONE
     Indication: Asthma
  3. ALENDRONATE [Suspect]
     Active Substance: ALENDRONATE SODIUM
     Indication: Fracture
     Route: 065

REACTIONS (14)
  - Injury [Unknown]
  - Osteonecrosis of jaw [Unknown]
  - Osteopenia [Unknown]
  - Cushing^s syndrome [Unknown]
  - Femur fracture [Unknown]
  - Pertussis [Unknown]
  - Depression [Unknown]
  - Emphysema [Unknown]
  - Social anxiety disorder [Unknown]
  - Chronic obstructive pulmonary disease [Unknown]
  - Skin haemorrhage [Unknown]
  - Arthritis [Unknown]
  - Osteoporosis [Unknown]
  - Contusion [Unknown]

NARRATIVE: CASE EVENT DATE: 20060101
